FAERS Safety Report 8481236-X (Version None)
Quarter: 2012Q3

REPORT INFORMATION
  Report Type: 
  Country: None (occurrence: None)
  Receive Date: 20120702
  Receipt Date: 20120626
  Transmission Date: 20120928
  Serious: Yes (Death)
  Sender: FDA-Public Use
  Company Number: AR-ASTRAZENECA-2012SE42035

PATIENT
  Age: 37 Year
  Sex: Female

DRUGS (8)
  1. MEROPENEM [Suspect]
     Route: 042
  2. CEFTAZIDIME [Concomitant]
     Indication: BACTERIAL INFECTION
     Route: 042
  3. MIDAZOLAM [Concomitant]
     Indication: GENERALISED NON-CONVULSIVE EPILEPSY
     Route: 042
  4. LEVETIRACETAM [Concomitant]
     Route: 042
  5. VANCOMYCIN [Concomitant]
     Indication: BACTERIAL INFECTION
     Route: 042
  6. VALPROIC ACID [Interacting]
     Indication: GENERALISED NON-CONVULSIVE EPILEPSY
     Dosage: 20MG/KG
     Route: 042
  7. DIAZEPAM [Concomitant]
     Indication: GRAND MAL CONVULSION
     Route: 042
  8. PHENYTOIN [Concomitant]
     Indication: GRAND MAL CONVULSION
     Route: 042

REACTIONS (2)
  - SEPSIS [None]
  - INHIBITORY DRUG INTERACTION [None]
